FAERS Safety Report 13153425 (Version 1)
Quarter: 2017Q1

REPORT INFORMATION
  Report Type: Spontaneous
  Country: US (occurrence: US)
  Receive Date: 20170125
  Receipt Date: 20170125
  Transmission Date: 20170428
  Serious: Yes (Other)
  Sender: FDA-Public Use
  Company Number: None

PATIENT
  Age: 45 Year
  Sex: Female
  Weight: 46.76 kg

DRUGS (1)
  1. DOCUSATE SOLUTION [Suspect]
     Active Substance: DOCUSATE
     Indication: CERUMEN IMPACTION
     Dosage: 5 DROPS EAR
     Dates: start: 201604

REACTIONS (2)
  - Ear infection [None]
  - Otitis externa [None]

NARRATIVE: CASE EVENT DATE: 20160415
